FAERS Safety Report 5388389-0 (Version None)
Quarter: 2007Q3

REPORT INFORMATION
  Report Type: 
  Country: None (occurrence: None)
  Receive Date: 20070712
  Receipt Date: 20070629
  Transmission Date: 20080115
  Serious: Yes (Hospitalization)
  Sender: FDA-Public Use
  Company Number: 2007RR-08324

PATIENT
  Sex: Male

DRUGS (1)
  1. SIMVASTATIN [Suspect]

REACTIONS (2)
  - HYPOKALAEMIA [None]
  - RHABDOMYOLYSIS [None]
